FAERS Safety Report 8361153-6 (Version None)
Quarter: 2012Q2

REPORT INFORMATION
  Report Type: 
  Country: None (occurrence: None)
  Receive Date: 20120515
  Receipt Date: 20110615
  Transmission Date: 20120825
  Serious: Yes (Other)
  Sender: FDA-Public Use
  Company Number: PL-ROCHE-1066897

PATIENT

DRUGS (1)
  1. HERCEPTIN [Suspect]
     Indication: BREAST CANCER
     Route: 065

REACTIONS (4)
  - HEPATIC FAILURE [None]
  - CARDIOTOXICITY [None]
  - CIRCULATORY COLLAPSE [None]
  - HYPERSENSITIVITY [None]
